FAERS Safety Report 25319344 (Version 1)
Quarter: 2025Q2

REPORT INFORMATION
  Report Type: Spontaneous
  Country: ES (occurrence: ES)
  Receive Date: 20250515
  Receipt Date: 20250515
  Transmission Date: 20250717
  Serious: Yes (Other)
  Sender: CELLTRION
  Company Number: ES-CELLTRION INC.-2023ES007851

PATIENT

DRUGS (2)
  1. ADALIMUMAB [Suspect]
     Active Substance: ADALIMUMAB
     Indication: Chorioretinitis
     Dosage: 40 MILLIGRAM, Q2WK (DOSAGE1: UNIT=NOT AVAILABLE)
     Route: 058
  2. OZURDEX [Concomitant]
     Active Substance: DEXAMETHASONE
     Indication: Chorioretinitis
     Route: 065

REACTIONS (2)
  - Retinal degeneration [Unknown]
  - Chorioretinal scar [Unknown]
